FAERS Safety Report 4743479-8 (Version None)
Quarter: 2005Q3

REPORT INFORMATION
  Report Type: 
  Country: None (occurrence: None)
  Receive Date: 20050809
  Receipt Date: 20050724
  Transmission Date: 20060218
  Serious: Yes (Hospitalization)
  Sender: FDA-Public Use
  Company Number: 2005EU001410

PATIENT
  Age: 38 Year
  Sex: Male

DRUGS (3)
  1. PROGRAF [Suspect]
     Indication: RENAL TRANSPLANT
     Dosage: /D
     Dates: start: 20020101
  2. PREDNISONE [Concomitant]
  3. MYCOPHENOLATE MOFETIL (MYCOPHENOLATE MOFETIL) [Concomitant]

REACTIONS (7)
  - CELLULITIS [None]
  - DISSEMINATED CRYPTOCOCCOSIS [None]
  - HAEMODIALYSIS [None]
  - JOINT EFFUSION [None]
  - MENINGITIS [None]
  - PERICARDITIS [None]
  - RENAL IMPAIRMENT [None]
